FAERS Safety Report 21436824 (Version 3)
Quarter: 2022Q4

REPORT INFORMATION
  Report Type: Spontaneous
  Country: HU (occurrence: HU)
  Receive Date: 20221010
  Receipt Date: 20221025
  Transmission Date: 20230112
  Serious: Yes (Other)
  Sender: FDA-Public Use
  Company Number: HU-NOVARTISPH-NVSC2022HU221842

PATIENT
  Age: 47 Year
  Sex: Female

DRUGS (11)
  1. DOXORUBICIN [Suspect]
     Active Substance: DOXORUBICIN
     Indication: Breast cancer stage III
     Dosage: UNK
     Route: 065
     Dates: start: 20210209, end: 20210525
  2. KISQALI [Interacting]
     Active Substance: RIBOCICLIB
     Indication: Breast cancer stage IV
     Dosage: 600 MG (IN THE MORNING, FOR 21 DAYS, THEN 7 DAYS BREAK)
     Route: 065
     Dates: start: 20210805, end: 20210901
  3. KISQALI [Interacting]
     Active Substance: RIBOCICLIB
     Dosage: 400 MG, QD (DAILY)
     Route: 065
     Dates: start: 20210908, end: 20220316
  4. KISQALI [Interacting]
     Active Substance: RIBOCICLIB
     Dosage: UNK
     Route: 065
     Dates: start: 20220330
  5. CLARITHROMYCIN [Interacting]
     Active Substance: CLARITHROMYCIN
     Indication: Respiratory tract infection
     Dosage: 500 MG, BID (2X500 MG) (DAILY)
     Route: 065
  6. CLARITHROMYCIN [Interacting]
     Active Substance: CLARITHROMYCIN
     Indication: Cough
  7. CLARITHROMYCIN [Interacting]
     Active Substance: CLARITHROMYCIN
     Indication: Rhinorrhoea
  8. CLARITHROMYCIN [Interacting]
     Active Substance: CLARITHROMYCIN
     Indication: Pyrexia
  9. DOCETAXEL [Concomitant]
     Active Substance: DOCETAXEL
     Indication: Breast cancer stage III
     Dosage: UNK
     Route: 065
     Dates: start: 20210209, end: 20210525
  10. CYCLOPHOSPHAMIDE [Concomitant]
     Active Substance: CYCLOPHOSPHAMIDE
     Indication: Breast cancer stage III
     Dosage: UNK
     Route: 065
     Dates: start: 20210209, end: 20210525
  11. FAMOS [Concomitant]
     Indication: Breast cancer stage IV
     Dosage: 2.5 MG, CONT (IN THE MORNING)
     Route: 065
     Dates: start: 20210805

REACTIONS (21)
  - Hormone receptor positive HER2 negative breast cancer [Unknown]
  - Electrocardiogram QT prolonged [Recovered/Resolved]
  - Electrocardiogram QT prolonged [Recovered/Resolved]
  - Metastases to bone [Not Recovered/Not Resolved]
  - Leukopenia [Recovered/Resolved]
  - Neutropenia [Recovered/Resolved]
  - Glomerular filtration rate decreased [Recovering/Resolving]
  - Gamma-glutamyltransferase increased [Not Recovered/Not Resolved]
  - Blood creatinine increased [Recovered/Resolved]
  - Nasopharyngitis [Recovered/Resolved]
  - Cough [Recovered/Resolved]
  - Pleural thickening [Unknown]
  - C-reactive protein increased [Unknown]
  - Red blood cell sedimentation rate increased [Unknown]
  - Blood alkaline phosphatase increased [Unknown]
  - Drug interaction [Unknown]
  - Haemoglobin decreased [Recovered/Resolved]
  - Respiratory tract infection [Unknown]
  - Rhinorrhoea [Unknown]
  - Pyrexia [Unknown]
  - Aspartate aminotransferase increased [Unknown]

NARRATIVE: CASE EVENT DATE: 20210101
